FAERS Safety Report 10067756 (Version 2)
Quarter: 2014Q1

REPORT INFORMATION
  Report Type: Spontaneous
  Country: US (occurrence: None)
  Receive Date: 20140311
  Receipt Date: 20140331
  Transmission Date: 20141002
  Serious: Yes (Death, Life-Threatening, Hospitalization, Other)
  Sender: FDA-Public Use
  Company Number: 09-AUR-10255

PATIENT
  Age: 57 Year
  Sex: Female

DRUGS (1)
  1. METFORMIN [Suspect]
     Indication: HYPERGLYCAEMIA

REACTIONS (8)
  - Dyspnoea [None]
  - Haemodialysis [None]
  - Cardiac arrest [None]
  - Hypotension [None]
  - Acute myocardial infarction [None]
  - Ventricular tachycardia [None]
  - Metabolic acidosis [None]
  - Toxicity to various agents [None]
